FAERS Safety Report 9354461 (Version 1)
Quarter: 2013Q2

REPORT INFORMATION
  Report Type: Spontaneous
  Country: US (occurrence: US)
  Receive Date: 20130618
  Receipt Date: 20130618
  Transmission Date: 20140414
  Serious: Yes (Hospitalization)
  Sender: FDA-Public Use
  Company Number: US-TEVA-413439USA

PATIENT
  Sex: Male

DRUGS (3)
  1. COPAXONE [Suspect]
  2. PRENATAL VITAMINS [Concomitant]
     Dosage: 1 DOSAGE FORMS DAILY;
     Dates: start: 20120101
  3. VITAMIN D [Concomitant]
     Dates: start: 2009

REACTIONS (1)
  - Apnoea neonatal [Unknown]
